FAERS Safety Report 5149254-7 (Version None)
Quarter: 2006Q4

REPORT INFORMATION
  Report Type: 
  Country: None (occurrence: None)
  Receive Date: 20061113
  Receipt Date: 20061110
  Transmission Date: 20070319
  Serious: Yes (Hospitalization)
  Sender: FDA-Public Use
  Company Number: US-GLAXOSMITHKLINE-A0627054A

PATIENT
  Age: 81 Year
  Sex: Male

DRUGS (11)
  1. AVANDIA [Suspect]
     Route: 048
     Dates: end: 20061102
  2. COUMADIN [Concomitant]
  3. PREVACID [Concomitant]
  4. NSAIDS [Concomitant]
  5. AMARYL [Concomitant]
  6. DIGOXIN [Concomitant]
  7. CARDIZEM [Concomitant]
  8. TRICOR [Concomitant]
  9. ZOCOR [Concomitant]
  10. MAGNESIUM SUPPLEMENT [Concomitant]
  11. MULTI-VITAMIN [Concomitant]

REACTIONS (4)
  - ABDOMINAL PAIN [None]
  - ANAEMIA [None]
  - ANOREXIA [None]
  - FATIGUE [None]
